FAERS Safety Report 20292096 (Version 1)
Quarter: 2022Q1

REPORT INFORMATION
  Report Type: Report from Study
  Country: US (occurrence: US)
  Receive Date: 20220104
  Receipt Date: 20220104
  Transmission Date: 20220423
  Serious: No
  Sender: FDA-Public Use
  Company Number: US-KYOWAKIRIN-2021BKK021839

PATIENT

DRUGS (2)
  1. CRYSVITA [Suspect]
     Active Substance: BUROSUMAB-TWZA
     Indication: Hereditary hypophosphataemic rickets
     Dosage: 20 MG (COMBINED WITH 60 MG OF CRYSVITA STRENGTH 30 MG/ML TO ACHIEVE A TOTAL DOSE OF 80 MG), EVERY 28
     Route: 058
     Dates: start: 20190306
  2. CRYSVITA [Suspect]
     Active Substance: BUROSUMAB-TWZA
     Indication: Hereditary hypophosphataemic rickets
     Dosage: 60 MG (COMBINED WITH 20 MG OF CRYSVITA STRENGTH 20 MG/ML TO ACHIEVE A TOTAL DOSE OF 80 MG), EVERY 28
     Route: 058
     Dates: start: 20190306

REACTIONS (3)
  - Pruritus [Unknown]
  - Pain [Unknown]
  - Muscle spasms [Unknown]
